FAERS Safety Report 8619964-5 (Version None)
Quarter: 2012Q3

REPORT INFORMATION
  Report Type: 
  Country: None (occurrence: None)
  Receive Date: 20120824
  Receipt Date: 20120815
  Transmission Date: 20120928
  Serious: Yes (Hospitalization, Other)
  Sender: FDA-Public Use
  Company Number: US-ELI_LILLY_AND_COMPANY-US201105002996

PATIENT
  Sex: Male

DRUGS (23)
  1. ZYPREXA [Suspect]
     Dosage: 10 MG, BID
  2. ZYPREXA [Suspect]
     Indication: PSYCHOTIC DISORDER
     Dosage: 15 MG, QD
     Route: 048
     Dates: start: 20030422
  3. XANAX [Concomitant]
  4. AMLODIPINE [Concomitant]
  5. ZYPREXA [Suspect]
     Dosage: 12.5 MG, QD
  6. ABILIFY [Concomitant]
  7. LORAZEPAM [Concomitant]
  8. LOTREL [Concomitant]
  9. ENABLEX [Concomitant]
  10. DITROPAN [Concomitant]
  11. TOPAMAX [Concomitant]
     Dosage: UNK
  12. TOPROL-XL [Concomitant]
  13. ZYPREXA [Suspect]
     Dosage: 5 MG, BID
  14. VALIUM [Concomitant]
  15. ZYPREXA [Suspect]
     Dosage: 20 MG, QD
  16. CLONAZEPAM [Concomitant]
     Dosage: UNK
  17. LAMICTAL [Concomitant]
  18. ATIVAN [Concomitant]
  19. LEXAPRO [Concomitant]
     Indication: ANXIETY
     Dosage: 10 MG, EACH EVENING
     Route: 048
  20. ZYPREXA [Suspect]
     Dosage: 10 MG, QD
  21. ZYPREXA [Suspect]
     Dosage: 25 MG, QD
     Dates: end: 20100304
  22. IMIPRAMINE HCL [Concomitant]
  23. LISINOPRIL [Concomitant]

REACTIONS (20)
  - COMPLEX PARTIAL SEIZURES [None]
  - HAEMORRHOIDS [None]
  - ASPARTATE AMINOTRANSFERASE INCREASED [None]
  - MENTAL STATUS CHANGES [None]
  - URINARY INCONTINENCE [None]
  - URINARY TRACT INFECTION [None]
  - WHITE BLOOD CELL COUNT INCREASED [None]
  - RHABDOMYOLYSIS [None]
  - CONVULSION [None]
  - HAEMATOCHEZIA [None]
  - ALANINE AMINOTRANSFERASE INCREASED [None]
  - MUSCLE RIGIDITY [None]
  - WEIGHT INCREASED [None]
  - OVERDOSE [None]
  - PARAPLEGIA [None]
  - DECUBITUS ULCER [None]
  - TRANSIENT ISCHAEMIC ATTACK [None]
  - MYOPATHY [None]
  - HEMIPARESIS [None]
  - OLIGURIA [None]
